FAERS Safety Report 20719336 (Version 4)
Quarter: 2022Q4

REPORT INFORMATION
  Report Type: Spontaneous
  Country: JP (occurrence: JP)
  Receive Date: 20220418
  Receipt Date: 20221219
  Transmission Date: 20230113
  Serious: No
  Sender: FDA-Public Use
  Company Number: JP-GLAXOSMITHKLINE-JP2022JPN064834

PATIENT

DRUGS (3)
  1. SOTROVIMAB [Suspect]
     Active Substance: SOTROVIMAB
     Indication: COVID-19
     Dosage: 500 MG, 500 MG/50 ML/30 MINUTES
     Route: 042
     Dates: start: 20220412, end: 20220412
  2. MAGNESIUM OXIDE [Suspect]
     Active Substance: MAGNESIUM OXIDE
     Indication: Constipation
     Dosage: 250 MG/DOSE
     Dates: start: 20220411
  3. DEXTROMETHORPHAN [Suspect]
     Active Substance: DEXTROMETHORPHAN
     Indication: Cough
     Dosage: 45 MG/DAY
     Dates: start: 20220412, end: 20220415

REACTIONS (1)
  - Exposure during pregnancy [Unknown]
